FAERS Safety Report 17191060 (Version 1)
Quarter: 2019Q4

REPORT INFORMATION
  Report Type: Spontaneous
  Country: SI (occurrence: SI)
  Receive Date: 20191223
  Receipt Date: 20191223
  Transmission Date: 20200122
  Serious: Yes (Other)
  Sender: FDA-Public Use
  Company Number: NVSC2019SI075287

PATIENT
  Age: 44 Year
  Sex: Female

DRUGS (5)
  1. ZOMETA [Suspect]
     Active Substance: ZOLEDRONIC ACID
     Indication: BREAST CANCER METASTATIC
     Dosage: UNK
     Route: 065
  2. RIBOCICLIB. [Suspect]
     Active Substance: RIBOCICLIB
     Indication: BREAST CANCER METASTATIC
     Dosage: 600 MG, QD
     Route: 065
  3. PACLITAXEL. [Concomitant]
     Active Substance: PACLITAXEL
     Indication: PRODUCT USED FOR UNKNOWN INDICATION
     Dosage: UNK, QW
     Route: 065
  4. GOSERELIN [Concomitant]
     Active Substance: GOSERELIN
     Indication: THERAPEUTIC OVARIAN SUPPRESSION
     Dosage: 3.6 MG (28 DAYS)
     Route: 058
     Dates: start: 201903
  5. FULVESTRANT. [Suspect]
     Active Substance: FULVESTRANT
     Indication: BREAST CANCER METASTATIC
     Dosage: 500 MG
     Route: 030

REACTIONS (7)
  - Ovarian neoplasm [Unknown]
  - Breast cancer metastatic [Unknown]
  - Hepatic necrosis [Unknown]
  - Ascites [Recovered/Resolved]
  - Metastases to liver [Recovering/Resolving]
  - Malignant neoplasm progression [Unknown]
  - Bone disorder [Unknown]
